FAERS Safety Report 5371010-5 (Version None)
Quarter: 2007Q2

REPORT INFORMATION
  Report Type: 
  Country: None (occurrence: None)
  Receive Date: 20070626
  Receipt Date: 20070614
  Transmission Date: 20071010
  Serious: Yes (Death, Hospitalization, Other)
  Sender: FDA-Public Use
  Company Number: CA-ELI_LILLY_AND_COMPANY-CA200705007165

PATIENT
  Age: 43 Year
  Sex: Female

DRUGS (11)
  1. FORTEO [Suspect]
     Indication: OSTEOPOROSIS
     Dosage: 20 UG, DAILY (1/D)
     Route: 058
     Dates: start: 20070223, end: 20070524
  2. METHADONE HCL [Concomitant]
  3. VITAMIN D [Concomitant]
  4. LYRICA [Concomitant]
  5. LANSOPRAZOLE [Concomitant]
  6. PLAQUENIL [Concomitant]
  7. VENTOLIN                                /SCH/ [Concomitant]
  8. COMBIVENT [Concomitant]
  9. POTASSIUM ACETATE [Concomitant]
  10. LACTULOSE [Concomitant]
  11. SENNOSIDE [Concomitant]

REACTIONS (5)
  - DEATH [None]
  - GENERAL PHYSICAL HEALTH DETERIORATION [None]
  - HYPOTONIA [None]
  - LUNG DISORDER [None]
  - MYOCARDIAL INFARCTION [None]
